FAERS Safety Report 10029875 (Version 1)
Quarter: 2014Q1

REPORT INFORMATION
  Report Type: Spontaneous
  Country: US (occurrence: None)
  Receive Date: 20140304
  Receipt Date: 20140304
  Transmission Date: 20141002
  Serious: Yes (Other)
  Sender: FDA-Public Use
  Company Number: RB-40318-2012

PATIENT
  Sex: Female

DRUGS (4)
  1. SUBOXONE [Suspect]
     Indication: DRUG DEPENDENCE
     Dosage: VARIOUS DOSES SUBLINGUAL
     Route: 060
     Dates: start: 201105, end: 201205
  2. SUBOXONE [Suspect]
     Indication: DRUG DEPENDENCE
     Dosage: VARIOUS DOSES SUBLINGUAL
     Route: 060
     Dates: start: 201105, end: 201205
  3. LISINOPRIL [Concomitant]
  4. HYDROCHLOROTHIAZIDE [Concomitant]

REACTIONS (9)
  - Substance abuse [None]
  - Dyspnoea [None]
  - Off label use [None]
  - Rhinorrhoea [None]
  - Pain [None]
  - Anxiety [None]
  - Feeling abnormal [None]
  - Drug withdrawal syndrome [None]
  - Wrong technique in drug usage process [None]
